FAERS Safety Report 9731106 (Version 2)
Quarter: 2013Q4

REPORT INFORMATION
  Report Type: Spontaneous
  Country: US (occurrence: US)
  Receive Date: 20131203
  Receipt Date: 20131216
  Transmission Date: 20140711
  Serious: Yes (Other)
  Sender: FDA-Public Use
  Company Number: US-JNJFOC-20131114010

PATIENT
  Sex: Female
  Weight: 104.33 kg

DRUGS (8)
  1. DURAGESIC [Suspect]
     Indication: PAIN
     Route: 062
     Dates: start: 2011
  2. DURAGESIC [Suspect]
     Indication: PAIN
     Route: 062
  3. DURAGESIC [Suspect]
     Indication: PAIN
     Route: 062
  4. DURAGESIC [Suspect]
     Indication: PAIN
     Route: 062
     Dates: start: 20131030
  5. ATIVAN [Concomitant]
     Indication: ANXIETY
     Route: 048
     Dates: start: 1980
  6. PAMELOR [Concomitant]
     Indication: DEPRESSION
     Dosage: STRENGTH OF 40 MG; 4 TABLETS THREE TIMES A DAY
     Route: 048
  7. NORCO [Concomitant]
     Indication: PAIN
     Dosage: 20-325MG
     Route: 048
     Dates: start: 2011, end: 20131030
  8. NORCO [Concomitant]
     Indication: PAIN
     Dosage: 10-325MG
     Route: 048
     Dates: start: 20131030

REACTIONS (8)
  - Hypertension [Not Recovered/Not Resolved]
  - Gait disturbance [Not Recovered/Not Resolved]
  - Eating disorder [Not Recovered/Not Resolved]
  - Pain [Not Recovered/Not Resolved]
  - Drug dose omission [Unknown]
  - Malaise [Not Recovered/Not Resolved]
  - Tremor [Not Recovered/Not Resolved]
  - Paraesthesia [Not Recovered/Not Resolved]
